FAERS Safety Report 10528461 (Version 3)
Quarter: 2015Q1

REPORT INFORMATION
  Report Type: Spontaneous
  Country: IT (occurrence: IT)
  Receive Date: 20141020
  Receipt Date: 20150116
  Transmission Date: 20150720
  Serious: Yes (Other)
  Sender: FDA-Public Use
  Company Number: IT-BRISTOL-MYERS SQUIBB COMPANY-21506365

PATIENT
  Age: 18 Year
  Sex: Male

DRUGS (3)
  1. ARIPIPRAZOLE. [Suspect]
     Active Substance: ARIPIPRAZOLE
     Indication: TOURETTE^S DISORDER
     Dosage: 10 MG, QD
     Route: 048
     Dates: start: 20061120
  2. CLONAZEPAM. [Suspect]
     Active Substance: CLONAZEPAM
     Indication: TOURETTE^S DISORDER
     Dosage: 15 GTT, QD
     Route: 048
     Dates: start: 20120608
  3. PAROXETINE [Suspect]
     Active Substance: PAROXETINE\PAROXETINE HYDROCHLORIDE
     Indication: TOURETTE^S DISORDER
     Dosage: 2 MG, QD
     Route: 048
     Dates: start: 20120608

REACTIONS (2)
  - Bundle branch block [Unknown]
  - Off label use [Unknown]

NARRATIVE: CASE EVENT DATE: 20140414
